FAERS Safety Report 18369131 (Version 1)
Quarter: 2020Q4

REPORT INFORMATION
  Report Type: Report from Study
  Country: None (occurrence: US)
  Receive Date: 20201011
  Receipt Date: 20201011
  Transmission Date: 20210114
  Serious: Yes (Hospitalization)
  Sender: FDA-Public Use
  Company Number: US-ABBVIE-20K-163-3602402-00

PATIENT
  Sex: Female

DRUGS (2)
  1. VENCLEXTA [Suspect]
     Active Substance: VENETOCLAX
     Indication: CHRONIC LYMPHOCYTIC LEUKAEMIA
     Route: 048
     Dates: start: 20200820, end: 2020
  2. IMBRUVICA [Concomitant]
     Active Substance: IBRUTINIB
     Indication: CHRONIC LYMPHOCYTIC LEUKAEMIA
     Dates: start: 20180412, end: 20200825

REACTIONS (8)
  - Mobility decreased [Unknown]
  - Alopecia [Unknown]
  - Asthenia [Unknown]
  - Splenomegaly [Unknown]
  - Weight decreased [Unknown]
  - Fall [Unknown]
  - Lymphadenopathy [Unknown]
  - Night sweats [Unknown]

NARRATIVE: CASE EVENT DATE: 2020
